FAERS Safety Report 13712847 (Version 3)
Quarter: 2017Q3

REPORT INFORMATION
  Report Type: Report from Study
  Country: US (occurrence: US)
  Receive Date: 20170703
  Receipt Date: 20170721
  Transmission Date: 20171127
  Serious: Yes (Other)
  Sender: FDA-Public Use
  Company Number: US-JAZZ-2017-US-002610

PATIENT
  Age: 62 Year
  Sex: Female

DRUGS (8)
  1. XYREM [Suspect]
     Active Substance: SODIUM OXYBATE
     Indication: NARCOLEPSY
     Dosage: 2.25 G, BID
     Route: 048
     Dates: start: 200603, end: 2006
  2. PROVIGIL [Concomitant]
     Active Substance: MODAFINIL
  3. ASPIRIN 81 [Concomitant]
     Active Substance: ASPIRIN
  4. NASONEX [Concomitant]
     Active Substance: MOMETASONE FUROATE
  5. VITAMIN C [Concomitant]
     Active Substance: ASCORBIC ACID
  6. XYREM [Suspect]
     Active Substance: SODIUM OXYBATE
     Dosage: 4.5 G, BID
     Route: 048
     Dates: start: 200604
  7. NUVIGIL [Concomitant]
     Active Substance: ARMODAFINIL
  8. VITAMIN D3 [Concomitant]
     Active Substance: CHOLECALCIFEROL

REACTIONS (3)
  - Influenza [Not Recovered/Not Resolved]
  - Pneumonia [Not Recovered/Not Resolved]
  - Pulmonary embolism [Recovering/Resolving]

NARRATIVE: CASE EVENT DATE: 201702
